FAERS Safety Report 8568277-9 (Version None)
Quarter: 2012Q3

REPORT INFORMATION
  Report Type: 
  Country: None (occurrence: None)
  Receive Date: 20120803
  Receipt Date: 20120713
  Transmission Date: 20120928
  Serious: No
  Sender: FDA-Public Use
  Company Number: US-ABBOTT-12P-163-0955894-00

PATIENT
  Sex: Male

DRUGS (1)
  1. NIASPAN [Suspect]
     Indication: PRODUCT USED FOR UNKNOWN INDICATION
     Dosage: TAKES ONE AT BEDTIME
     Route: 048
     Dates: start: 20120712

REACTIONS (6)
  - FLUSHING [None]
  - ERYTHEMA [None]
  - SKIN BURNING SENSATION [None]
  - PRURITUS [None]
  - DIZZINESS [None]
  - MIDDLE INSOMNIA [None]
